FAERS Safety Report 9855874 (Version 1)
Quarter: 2014Q1

REPORT INFORMATION
  Report Type: Spontaneous
  Country: US (occurrence: US)
  Receive Date: 20140130
  Receipt Date: 20140130
  Transmission Date: 20141002
  Serious: Yes (Other)
  Sender: FDA-Public Use
  Company Number: US-B.I. PHARMACEUTICALS,INC./RIDGEFIELD-2014-BI-03057BP

PATIENT
  Sex: Female
  Weight: 83 kg

DRUGS (3)
  1. COMBIVENT [Suspect]
     Indication: BRONCHIECTASIS
     Dosage: DOSE PER APPLICATION: 18 MCG / 103 MCG; DAILY DOSE: 144 MCG/824 MCG
     Route: 055
     Dates: start: 2006, end: 201309
  2. ADVAIR [Concomitant]
     Route: 055
     Dates: start: 2006
  3. COMBIVENT RESPIMAT [Concomitant]
     Dosage: FORMULATION: INHALATION SPRAY; DOSE PER APPLICATION: 20MCG/100MCG;
     Route: 055
     Dates: start: 201309

REACTIONS (3)
  - Breast cancer [Not Recovered/Not Resolved]
  - Anxiety [Not Recovered/Not Resolved]
  - Off label use [Unknown]
